FAERS Safety Report 9676433 (Version 4)
Quarter: 2014Q1

REPORT INFORMATION
  Report Type: Report from Study
  Country: DE (occurrence: DE)
  Receive Date: 20131107
  Receipt Date: 20140321
  Transmission Date: 20141002
  Serious: Yes (Hospitalization)
  Sender: FDA-Public Use
  Company Number: PHHO2013DE014385

PATIENT
  Sex: 0

DRUGS (8)
  1. ACETYLSALICYLIC ACID [Suspect]
     Dosage: 100
     Dates: start: 20130105
  2. BLINDED ACZ885 [Suspect]
     Indication: CARDIOVASCULAR EVENT PROPHYLAXIS
     Dosage: CODE NOT BROKEN
     Route: 058
     Dates: start: 20130507
  3. BLINDED NO TREATMENT RECEIVED [Suspect]
     Indication: CARDIOVASCULAR EVENT PROPHYLAXIS
     Dosage: CODE NOT BROKEN
     Route: 058
     Dates: start: 20130507
  4. BLINDED PLACEBO [Suspect]
     Indication: CARDIOVASCULAR EVENT PROPHYLAXIS
     Dosage: CODE NOT BROKEN
     Route: 058
     Dates: start: 20130507
  5. MARCUMAR [Suspect]
     Dosage: UNK
     Dates: start: 20130708
  6. MARCUMAR [Suspect]
     Dosage: UNK
     Dates: end: 20130912
  7. PRASUGREL [Suspect]
     Dosage: UNK
     Dates: start: 20130105
  8. ALLOPURINOL [Concomitant]
     Dosage: 150
     Dates: start: 20130708

REACTIONS (1)
  - Lower gastrointestinal haemorrhage [Recovered/Resolved]
